FAERS Safety Report 9229879 (Version 1)
Quarter: 2013Q2

REPORT INFORMATION
  Report Type: Spontaneous
  Country: US (occurrence: None)
  Receive Date: 20130411
  Receipt Date: 20130411
  Transmission Date: 20140414
  Serious: Yes (Other)
  Sender: FDA-Public Use
  Company Number: AUR-APL-2013-02908

PATIENT
  Sex: Female

DRUGS (4)
  1. LISINOPRIL (LISINOPRIL) [Suspect]
     Indication: HYPERTENSION
  2. ATORVASTATIN CALCIUM (ATORVASTAIN CALCIUM) [Concomitant]
  3. ETHINYLESTRADIOL (ETHINYLESTRADIOL) [Concomitant]
  4. NORETHINDRONE [Suspect]

REACTIONS (8)
  - Abdominal pain [None]
  - Nausea [None]
  - Vomiting [None]
  - Ascites [None]
  - Gastrointestinal oedema [None]
  - Ischaemia [None]
  - Vasculitis [None]
  - Inflammatory bowel disease [None]
